FAERS Safety Report 8808501 (Version 3)
Quarter: 2013Q2

REPORT INFORMATION
  Report Type: Spontaneous
  Country: US (occurrence: US)
  Receive Date: 20120926
  Receipt Date: 20130509
  Transmission Date: 20140414
  Serious: Yes (Hospitalization, Other)
  Sender: FDA-Public Use
  Company Number: US-BAYER-2012-098412

PATIENT
  Age: 39 Year
  Sex: Female
  Weight: 107.3 kg

DRUGS (9)
  1. YASMIN [Suspect]
     Dosage: UNK
     Dates: start: 200308
  2. OCELLA [Suspect]
     Dosage: UNK
     Dates: start: 200308
  3. YAZ [Suspect]
  4. ATENOLOL [Concomitant]
     Dosage: 25 MG, BID
     Route: 048
     Dates: start: 20090702, end: 20101129
  5. FENOFIBRATE [Concomitant]
     Dosage: 160 MG, QD
     Route: 048
     Dates: start: 20070827, end: 20090702
  6. VITAMIN B12 [Concomitant]
     Dosage: 500 MICROGRAMS ONCE A DAY
     Route: 048
     Dates: start: 20090702, end: 20101129
  7. PRILOSEC [Concomitant]
     Dosage: 10 MG, QD
     Route: 048
     Dates: start: 20090702, end: 20101129
  8. SYNTHROID [Concomitant]
     Dosage: 30 MICROGRAMS DAILY
     Route: 048
  9. FENOFIBRATE [Concomitant]
     Dosage: 160 MG, UNK
     Route: 048

REACTIONS (6)
  - Gallbladder disorder [None]
  - Deep vein thrombosis [None]
  - Cholelithiasis [None]
  - Injury [None]
  - Pain [None]
  - Pain [None]
